FAERS Safety Report 9798684 (Version 1)
Quarter: 2014Q1

REPORT INFORMATION
  Report Type: Spontaneous
  Country: US (occurrence: US)
  Receive Date: 20140106
  Receipt Date: 20140106
  Transmission Date: 20141002
  Serious: No
  Sender: FDA-Public Use
  Company Number: US-GILEAD-2010-0029733

PATIENT
  Sex: Female

DRUGS (16)
  1. LETAIRIS [Suspect]
     Indication: PULMONARY ARTERIAL HYPERTENSION
     Route: 048
     Dates: start: 20091016
  2. TYVASO [Concomitant]
  3. BABY ASPIRIN [Concomitant]
  4. TYLENOL 8HR [Concomitant]
  5. CALCIUM [Concomitant]
  6. PRILOSEC [Concomitant]
  7. METOPROLOL [Concomitant]
  8. SIMVASTATIN [Concomitant]
  9. DIOVAN [Concomitant]
  10. REVATIO [Concomitant]
  11. PLAQUENIL [Concomitant]
  12. LASIX [Concomitant]
  13. ULTRAM [Concomitant]
  14. ZOLOFT [Concomitant]
  15. COUMADIN [Concomitant]
  16. SULFACET-R [Concomitant]

REACTIONS (1)
  - Local swelling [Unknown]
